FAERS Safety Report 12721564 (Version 1)
Quarter: 2016Q3

REPORT INFORMATION
  Report Type: Spontaneous
  Country: US (occurrence: US)
  Receive Date: 20160906
  Receipt Date: 20160906
  Transmission Date: 20161109
  Serious: Yes (Other)
  Sender: FDA-Public Use
  Company Number: None

PATIENT
  Age: 60 Year
  Sex: Female

DRUGS (3)
  1. FINGOLIMOD [Suspect]
     Active Substance: FINGOLIMOD
  2. AMPYRA [Suspect]
     Active Substance: DALFAMPRIDINE
     Indication: MULTIPLE SCLEROSIS
     Route: 048
     Dates: start: 201505
  3. LATANOPROST. [Suspect]
     Active Substance: LATANOPROST

REACTIONS (6)
  - Ventricular tachycardia [None]
  - Nuclear magnetic resonance imaging brain abnormal [None]
  - Chest pain [None]
  - Vomiting [None]
  - Diarrhoea [None]
  - Cerebral ischaemia [None]

NARRATIVE: CASE EVENT DATE: 20160408
